FAERS Safety Report 5884373-9 (Version None)
Quarter: 2008Q3

REPORT INFORMATION
  Report Type: 
  Country: None (occurrence: None)
  Receive Date: 20080915
  Receipt Date: 20080903
  Transmission Date: 20090109
  Serious: Yes (Congenital Anomaly, Other)
  Sender: FDA-Public Use
  Company Number: JP-PFIZER INC-2008063135

PATIENT
  Sex: Male

DRUGS (6)
  1. CHANTIX [Suspect]
     Indication: SMOKING CESSATION THERAPY
     Route: 048
     Dates: start: 20080715, end: 20080723
  2. CHANTIX [Suspect]
     Indication: EX-TOBACCO USER
  3. PAXIL [Concomitant]
     Route: 048
     Dates: start: 20080715, end: 20080723
  4. DEPAS [Concomitant]
     Route: 048
     Dates: start: 20080711
  5. RABEPRAZOLE SODIUM [Concomitant]
     Route: 048
     Dates: start: 20080715, end: 20080723
  6. MYSLEE [Concomitant]
     Route: 048
     Dates: start: 20080715, end: 20080723

REACTIONS (6)
  - ABNORMAL BEHAVIOUR [None]
  - ANAEMIA [None]
  - ANOREXIA [None]
  - DEPRESSED MOOD [None]
  - FEELING ABNORMAL [None]
  - MENTAL DISORDER [None]
